FAERS Safety Report 11720361 (Version 1)
Quarter: 2015Q4

REPORT INFORMATION
  Report Type: Spontaneous
  Country: FR (occurrence: FR)
  Receive Date: 20151110
  Receipt Date: 20151110
  Transmission Date: 20160304
  Serious: Yes (Other)
  Sender: FDA-Public Use
  Company Number: FR-GLAXOSMITHKLINE-FR2015GSK159104

PATIENT
  Sex: Female

DRUGS (4)
  1. APROVEL [Concomitant]
     Active Substance: IRBESARTAN
  2. ZINNAT [Suspect]
     Active Substance: CEFUROXIME AXETIL
     Indication: NASOPHARYNGITIS
     Dosage: UNK
     Route: 048
     Dates: start: 2014, end: 2014
  3. GARDENAL [Concomitant]
     Active Substance: PHENOBARBITAL
  4. DEPAKINE [Concomitant]
     Active Substance: VALPROATE SODIUM

REACTIONS (1)
  - Face oedema [Recovered/Resolved]

NARRATIVE: CASE EVENT DATE: 2014
